FAERS Safety Report 7798295-X (Version None)
Quarter: 2011Q4

REPORT INFORMATION
  Report Type: 
  Country: None (occurrence: None)
  Receive Date: 20111005
  Receipt Date: 20110930
  Transmission Date: 20120403
  Serious: Yes (Other)
  Sender: FDA-Public Use
  Company Number: PHHY2011DE70816

PATIENT
  Sex: Male
  Weight: 58 kg

DRUGS (1)
  1. EXTAVIA [Suspect]
     Indication: MULTIPLE SCLEROSIS
     Dosage: 1 ML, QOD
     Route: 058
     Dates: start: 20101207, end: 20110628

REACTIONS (2)
  - INJECTION SITE ABSCESS [None]
  - WRONG TECHNIQUE IN DRUG USAGE PROCESS [None]
